FAERS Safety Report 8985207 (Version 1)
Quarter: 2012Q4

REPORT INFORMATION
  Report Type: 
  Country: BE (occurrence: BE)
  Receive Date: 20121226
  Receipt Date: 20121226
  Transmission Date: 20130627
  Serious: Yes (Disabling, Other)
  Sender: FDA-Public Use
  Company Number: BE-PFIZER INC-2012328015

PATIENT
  Age: 56 Year
  Sex: Male

DRUGS (11)
  1. CORDARONE [Suspect]
     Dosage: 200 mg, 1x/day
     Route: 048
     Dates: start: 20120914
  2. GARDENALE [Suspect]
     Indication: EPILEPSY
     Dosage: 100 mg, 1x/day
     Route: 048
     Dates: start: 201102, end: 20121119
  3. MEBEVERINE [Suspect]
     Indication: BOWEL SPASM
     Dosage: 135 mg, 3x/day
     Route: 048
     Dates: start: 20121114, end: 20121115
  4. ASAFLOW [Concomitant]
     Dosage: UNK
     Dates: start: 2002
  5. GLURENORM [Concomitant]
     Dosage: UNK
     Dates: start: 2009
  6. LIPITOR [Concomitant]
     Dosage: UNK
     Dates: start: 2004
  7. BISOPROLOL EG [Concomitant]
     Dosage: UNK
     Dates: start: 2003, end: 20121119
  8. VENLAFAXINE [Concomitant]
     Dosage: UNK
     Dates: start: 201207
  9. MIRTAZAPINE [Concomitant]
     Dosage: UNK
     Dates: start: 201207
  10. SINTROM [Concomitant]
     Dosage: UNK
     Dates: start: 20120914
  11. COVERSYL [Concomitant]
     Dosage: UNK
     Dates: start: 2003

REACTIONS (2)
  - Off label use [Unknown]
  - Porphyria [Recovered/Resolved]
